FAERS Safety Report 14417735 (Version 1)
Quarter: 2018Q1

REPORT INFORMATION
  Report Type: Spontaneous
  Country: US (occurrence: US)
  Receive Date: 20180119
  Receipt Date: 20180119
  Transmission Date: 20180509
  Serious: No
  Sender: FDA-Public Use
  Company Number: None

PATIENT
  Age: 49 Year
  Sex: Female
  Weight: 93.6 kg

DRUGS (2)
  1. CIPROFLOXACIN. [Suspect]
     Active Substance: CIPROFLOXACIN
     Indication: BRONCHIAL IRRITATION
     Dosage: ?          QUANTITY:14 TABLET(S);?
     Route: 048
     Dates: start: 20180116, end: 20180119
  2. ZINC. [Concomitant]
     Active Substance: ZINC

REACTIONS (14)
  - Fatigue [None]
  - Dizziness [None]
  - Tendon pain [None]
  - Swelling [None]
  - Urinary tract infection [None]
  - Breath odour [None]
  - Tinnitus [None]
  - Arthralgia [None]
  - Micturition disorder [None]
  - Chills [None]
  - Dyspnoea [None]
  - Hyperhidrosis [None]
  - Chest pain [None]
  - Decreased appetite [None]
